FAERS Safety Report 4731622-6 (Version None)
Quarter: 2005Q3

REPORT INFORMATION
  Report Type: 
  Country: None (occurrence: None)
  Receive Date: 20050801
  Receipt Date: 20050801
  Transmission Date: 20060218
  Serious: Yes (Hospitalization)
  Sender: FDA-Public Use
  Company Number: None

PATIENT
  Sex: Female
  Weight: 58 kg

DRUGS (2)
  1. TUBERCULIN 5 TU/0.1 ML PARKEDALE [Suspect]
     Indication: TUBERCULIN TEST
     Dosage: 0.1 ML ANNUAL INTRADERMAL
     Route: 023
     Dates: start: 20050719, end: 20050719
  2. ALLEGRA [Concomitant]

REACTIONS (3)
  - INJECTION SITE PAIN [None]
  - INJECTION SITE REACTION [None]
  - MYALGIA [None]
